FAERS Safety Report 5820354-9 (Version None)
Quarter: 2008Q3

REPORT INFORMATION
  Report Type: 
  Country: None (occurrence: None)
  Receive Date: 20080724
  Receipt Date: 20070614
  Transmission Date: 20090109
  Serious: No
  Sender: FDA-Public Use
  Company Number: A0656601A

PATIENT
  Age: 84 Year
  Sex: Male

DRUGS (2)
  1. AVANDIA [Suspect]
     Route: 048
     Dates: start: 20070401, end: 20070606
  2. NO CONCURRENT MEDICATION [Concomitant]

REACTIONS (3)
  - DIZZINESS [None]
  - FATIGUE [None]
  - OEDEMA PERIPHERAL [None]
